FAERS Safety Report 9315721 (Version 1)
Quarter: 2013Q2

REPORT INFORMATION
  Report Type: Spontaneous
  Country: JP (occurrence: JP)
  Receive Date: 20130529
  Receipt Date: 20130529
  Transmission Date: 20140414
  Serious: Yes (Other)
  Sender: FDA-Public Use
  Company Number: PHHY2013JP053411

PATIENT
  Age: 69 Year
  Sex: Male

DRUGS (8)
  1. CISPLATIN [Suspect]
     Indication: METASTASES TO THE MEDIASTINUM
  2. CISPLATIN [Suspect]
     Indication: LUNG ADENOCARCINOMA METASTATIC
  3. VINORELBINE [Suspect]
     Indication: METASTASES TO THE MEDIASTINUM
  4. VINORELBINE [Suspect]
     Indication: LUNG ADENOCARCINOMA METASTATIC
  5. PEMETREXED [Suspect]
     Indication: METASTASES TO THE MEDIASTINUM
  6. PEMETREXED [Suspect]
     Indication: LUNG ADENOCARCINOMA METASTATIC
  7. BEVACIZUMAB [Suspect]
     Indication: METASTASES TO THE MEDIASTINUM
  8. BEVACIZUMAB [Suspect]
     Indication: LUNG ADENOCARCINOMA METASTATIC

REACTIONS (1)
  - Acute myeloid leukaemia [Unknown]
